FAERS Safety Report 10297476 (Version 4)
Quarter: 2014Q3

REPORT INFORMATION
  Report Type: Report from Study
  Country: US (occurrence: US)
  Receive Date: 20140711
  Receipt Date: 20140923
  Transmission Date: 20150326
  Serious: Yes (Hospitalization, Other)
  Sender: FDA-Public Use
  Company Number: US-ROCHE-1433380

PATIENT
  Age: 55 Year
  Sex: Female

DRUGS (6)
  1. PEGASYS [Suspect]
     Active Substance: PEGINTERFERON ALFA-2A
     Indication: CHRONIC HEPATITIS C
     Route: 065
     Dates: start: 20140613
  2. CARVEDILOL. [Concomitant]
     Active Substance: CARVEDILOL
     Dosage: PRIOR TO THERAPY
     Route: 065
  3. GABAPENTIN. [Concomitant]
     Active Substance: GABAPENTIN
     Dosage: 3 IN MORNING, 3 IN AFTERNOON AND 3 AT NIGHT.
     Route: 065
  4. CARVEDILOL. [Concomitant]
     Active Substance: CARVEDILOL
     Route: 065
  5. RIBASPHERE [Suspect]
     Active Substance: RIBAVIRIN
     Indication: CHRONIC HEPATITIS C
     Route: 065
     Dates: start: 20140613
  6. SOVALDI [Suspect]
     Active Substance: SOFOSBUVIR
     Indication: CHRONIC HEPATITIS C
     Route: 065
     Dates: start: 20140613

REACTIONS (11)
  - Heart rate increased [Recovered/Resolved]
  - Blood pressure decreased [Recovered/Resolved]
  - Asthenia [Unknown]
  - Anaemia [Unknown]
  - Nausea [Unknown]
  - Dyspnoea [Unknown]
  - Weight decreased [Unknown]
  - Hypertension [Unknown]
  - Cardiac disorder [Unknown]
  - Diarrhoea [Unknown]
  - Lung infection [Unknown]

NARRATIVE: CASE EVENT DATE: 20140628
